FAERS Safety Report 15075426 (Version 1)
Quarter: 2018Q2

REPORT INFORMATION
  Report Type: Report from Study
  Country: US (occurrence: US)
  Receive Date: 20180627
  Receipt Date: 20180627
  Transmission Date: 20180711
  Serious: No
  Sender: FDA-Public Use
  Company Number: US-SAOL THERAPEUTICS-2018SAO00623

PATIENT
  Age: 61 Year

DRUGS (6)
  1. COMPOUNDED BACLOFEN [Suspect]
     Active Substance: BACLOFEN
     Dosage: 112.39 ?G, \DAY
     Route: 037
     Dates: start: 20171116
  2. BUPIVACAINE. [Suspect]
     Active Substance: BUPIVACAINE
     Dosage: 4.995 MG, \DAY
     Route: 037
     Dates: start: 20171116
  3. DILAUDID [Suspect]
     Active Substance: HYDROMORPHONE HYDROCHLORIDE
     Dosage: 1.998 MG, \DAY
     Route: 037
     Dates: start: 20171116
  4. DILAUDID [Suspect]
     Active Substance: HYDROMORPHONE HYDROCHLORIDE
     Dosage: 2.875 MG, \DAY; TOTAL MAXIMUM DAILY DOSE
     Route: 037
     Dates: start: 20171116
  5. BUPIVACAINE. [Suspect]
     Active Substance: BUPIVACAINE
     Dosage: 7.188 MG, \DAY; TOTAL MAXIMUM DAILY DOSE
     Route: 037
     Dates: start: 20171116
  6. COMPOUNDED BACLOFEN [Suspect]
     Active Substance: BACLOFEN
     Dosage: 161.72 ?G, \DAY; TOTAL MAXIMUM DAILY DOSE
     Route: 037
     Dates: start: 20171116

REACTIONS (1)
  - Implant site pain [Not Recovered/Not Resolved]

NARRATIVE: CASE EVENT DATE: 20180301
